FAERS Safety Report 19774789 (Version 2)
Quarter: 2021Q3

REPORT INFORMATION
  Report Type: Report from Study
  Country: US (occurrence: US)
  Receive Date: 20210901
  Receipt Date: 20210916
  Transmission Date: 20211014
  Serious: Yes (Death)
  Sender: FDA-Public Use
  Company Number: US-JNJFOC-20210849946

PATIENT
  Age: 34 Year
  Sex: Male

DRUGS (10)
  1. SPRAVATO [Suspect]
     Active Substance: ESKETAMINE
     Dosage: X 5 DOSES
     Dates: start: 20200331, end: 20210414
  2. SPRAVATO [Suspect]
     Active Substance: ESKETAMINE
     Dates: start: 20210520, end: 20210520
  3. SPRAVATO [Suspect]
     Active Substance: ESKETAMINE
     Dosage: X 1 DOSES
     Dates: start: 20200421, end: 20200421
  4. PROZAC [Concomitant]
     Active Substance: FLUOXETINE HYDROCHLORIDE
  5. AMBIEN [Concomitant]
     Active Substance: ZOLPIDEM TARTRATE
  6. ADDERALL [Concomitant]
     Active Substance: AMPHETAMINE ASPARTATE\AMPHETAMINE SULFATE\DEXTROAMPHETAMINE SACCHARATE\DEXTROAMPHETAMINE SULFATE
  7. SPRAVATO [Suspect]
     Active Substance: ESKETAMINE
     Indication: DEPRESSION
     Dosage: X 5 DOSES
     Dates: start: 20200311, end: 20200327
  8. SPRAVATO [Suspect]
     Active Substance: ESKETAMINE
     Dosage: X 50 DOSES
     Dates: start: 20200501, end: 20210430
  9. CLONIDINE. [Concomitant]
     Active Substance: CLONIDINE
  10. SPRAVATO [Suspect]
     Active Substance: ESKETAMINE
     Dosage: X 2 DOSES
     Dates: start: 20210511, end: 20210518

REACTIONS (1)
  - Death [Fatal]

NARRATIVE: CASE EVENT DATE: 20210824
